FAERS Safety Report 5616692-5 (Version None)
Quarter: 2008Q1

REPORT INFORMATION
  Report Type: 
  Country: None (occurrence: None)
  Receive Date: 20080204
  Receipt Date: 20080122
  Transmission Date: 20080703
  Serious: Yes (Other)
  Sender: FDA-Public Use
  Company Number: STI-2007-02030

PATIENT
  Sex: Female

DRUGS (3)
  1. 520C CLARIPEL (HYDROQUINONE) (HYDROQUINONE) (4 % , GEL) [Suspect]
     Dosage: AT NIGHT AND IN MORNING; TOPICAL
     Route: 061
     Dates: start: 20071101
  2. FEMIANE (FEMODENE) [Concomitant]
  3. EPISOL SPF 45 (SUNSCREEN) [Concomitant]

REACTIONS (3)
  - GASTRITIS [None]
  - IRRITABLE BOWEL SYNDROME [None]
  - MENORRHAGIA [None]
